FAERS Safety Report 5923384-1 (Version None)
Quarter: 2008Q4

REPORT INFORMATION
  Report Type: 
  Country: None (occurrence: None)
  Receive Date: 20081020
  Receipt Date: 20080917
  Transmission Date: 20090506
  Serious: No
  Sender: FDA-Public Use
  Company Number: US-BAYER-200833983NA

PATIENT
  Age: 40 Year
  Sex: Female

DRUGS (2)
  1. OCELLA [Suspect]
     Indication: CONTRACEPTION
     Route: 048
     Dates: start: 20080701, end: 20080701
  2. YASMIN [Suspect]
     Indication: CONTRACEPTION
     Dates: start: 20080701

REACTIONS (6)
  - DYSPEPSIA [None]
  - FLATULENCE [None]
  - HEADACHE [None]
  - HUNGER [None]
  - MOOD SWINGS [None]
  - NAUSEA [None]
